FAERS Safety Report 8418509-2 (Version None)
Quarter: 2012Q2

REPORT INFORMATION
  Report Type: 
  Country: None (occurrence: None)
  Receive Date: 20120607
  Receipt Date: 20120530
  Transmission Date: 20120825
  Serious: Yes (Other)
  Sender: FDA-Public Use
  Company Number: JP-ASTELLAS-2012JP001265

PATIENT
  Sex: Male
  Weight: 64.2 kg

DRUGS (13)
  1. PROGRAF [Suspect]
     Dosage: 2 MG, UNKNOWN/D
     Route: 048
     Dates: start: 20110301, end: 20110905
  2. CELEBREX [Concomitant]
     Dosage: 200 MG, BID
     Route: 048
     Dates: start: 20120117
  3. PREDNISOLONE [Concomitant]
     Dosage: 2.5 MG, BID
     Route: 048
     Dates: start: 20110906, end: 20120117
  4. MOBIC [Suspect]
     Dosage: 10 MG, UID/QD
     Route: 048
     Dates: start: 20110301, end: 20110906
  5. LANSOPRAZOLE [Concomitant]
     Dosage: 15 MG, UID/QD
     Route: 048
     Dates: start: 20110831
  6. ZOLPIDEM [Concomitant]
     Dosage: 10 MG, UID/QD
     Route: 048
     Dates: start: 20110301
  7. CLARITHROMYCIN [Concomitant]
     Dosage: 200 MG, UID/QD
     Route: 048
     Dates: start: 20120117
  8. AZULFIDINE [Concomitant]
     Dosage: 500 MG, BID
     Route: 048
     Dates: start: 20110301, end: 20110906
  9. REBAMIPIDE [Concomitant]
     Dosage: 100 MG, BID
     Route: 048
     Dates: start: 20110301, end: 20110801
  10. PLAVIX [Concomitant]
     Dosage: 50 MG, UID/QD
     Route: 048
     Dates: start: 20111208
  11. PROGRAF [Suspect]
     Indication: RHEUMATOID ARTHRITIS
     Dosage: 1 MG, TID
     Route: 048
     Dates: start: 20110906, end: 20111229
  12. CLARITHROMYCIN [Concomitant]
     Dosage: 400 MG, UID/QD
     Route: 048
     Dates: start: 20120110, end: 20120116
  13. PREDNISOLONE [Concomitant]
     Dosage: 10 MG, UID/QD
     Route: 048
     Dates: start: 20120117

REACTIONS (4)
  - UPPER RESPIRATORY TRACT INFLAMMATION [None]
  - GASTRIC ULCER [None]
  - INTERSTITIAL LUNG DISEASE [None]
  - CEREBRAL INFARCTION [None]
